FAERS Safety Report 8308513-7 (Version None)
Quarter: 2012Q2

REPORT INFORMATION
  Report Type: 
  Country: None (occurrence: None)
  Receive Date: 20120424
  Receipt Date: 20091110
  Transmission Date: 20120825
  Serious: Yes (Hospitalization)
  Sender: FDA-Public Use
  Company Number: US-TEVA-2009015166

PATIENT
  Age: 2 Year

DRUGS (1)
  1. PROVIGIL [Suspect]
     Route: 048

REACTIONS (4)
  - TACHYCARDIA [None]
  - ACCIDENTAL DRUG INTAKE BY CHILD [None]
  - DYSKINESIA [None]
  - RESTLESSNESS [None]
